FAERS Safety Report 17106309 (Version 1)
Quarter: 2019Q4

REPORT INFORMATION
  Report Type: Spontaneous
  Country: US (occurrence: US)
  Receive Date: 20191203
  Receipt Date: 20191203
  Transmission Date: 20200122
  Serious: No
  Sender: FDA-Public Use
  Company Number: US-BAUSCH-BL-2019-057406

PATIENT
  Age: 64 Year
  Sex: Female

DRUGS (5)
  1. POLYMYXIN B SULFATE AND TRIMETHOPRIM [Suspect]
     Active Substance: POLYMYXIN B SULFATE\TRIMETHOPRIM SULFATE
     Indication: EYE INFECTION
     Dosage: 1 DROP IN BOTH EYES THREE TIMES DAILY
     Route: 047
     Dates: start: 20191004, end: 20191007
  2. ESTRADIOL. [Concomitant]
     Active Substance: ESTRADIOL
     Indication: PRODUCT USED FOR UNKNOWN INDICATION
     Route: 061
  3. PROGESTERONE. [Concomitant]
     Active Substance: PROGESTERONE
     Indication: PRODUCT USED FOR UNKNOWN INDICATION
     Route: 048
  4. POLYMYXIN B SULFATE AND TRIMETHOPRIM [Suspect]
     Active Substance: POLYMYXIN B SULFATE\TRIMETHOPRIM SULFATE
     Indication: BLEPHARITIS
  5. TESTOSTERONE. [Concomitant]
     Active Substance: TESTOSTERONE
     Indication: PRODUCT USED FOR UNKNOWN INDICATION
     Route: 061

REACTIONS (6)
  - Erythema of eyelid [Recovering/Resolving]
  - Eyelid irritation [Recovering/Resolving]
  - Ocular hyperaemia [Recovering/Resolving]
  - Inappropriate schedule of product administration [Unknown]
  - Swelling of eyelid [Recovering/Resolving]
  - Eyelids pruritus [Recovering/Resolving]

NARRATIVE: CASE EVENT DATE: 201910
